FAERS Safety Report 10442404 (Version 2)
Quarter: 2014Q4

REPORT INFORMATION
  Report Type: Spontaneous
  Country: US (occurrence: US)
  Receive Date: 20140909
  Receipt Date: 20141111
  Transmission Date: 20150528
  Serious: Yes (Hospitalization, Other)
  Sender: FDA-Public Use
  Company Number: US-BAYER-2014-130084

PATIENT
  Age: 34 Year
  Sex: Female

DRUGS (1)
  1. MIRENA [Suspect]
     Active Substance: LEVONORGESTREL
     Indication: CONTRACEPTION
     Dosage: 20 MCG/24HR, CONT
     Route: 015
     Dates: start: 20071214, end: 20121217

REACTIONS (18)
  - Emotional distress [None]
  - Internal injury [None]
  - Device dislocation [None]
  - Device dislocation [None]
  - Embedded device [None]
  - Device difficult to use [None]
  - Stress [None]
  - Depressed mood [None]
  - Device issue [None]
  - Anger [None]
  - Frustration [None]
  - Device defective [None]
  - Device use error [None]
  - Genital haemorrhage [None]
  - Injury [None]
  - Pain [None]
  - Abdominal pain lower [None]
  - Anxiety [None]

NARRATIVE: CASE EVENT DATE: 20071214
